FAERS Safety Report 24886972 (Version 1)
Quarter: 2025Q1

REPORT INFORMATION
  Report Type: Report from Study
  Country: CO (occurrence: CO)
  Receive Date: 20250127
  Receipt Date: 20250127
  Transmission Date: 20250409
  Serious: Yes (Other)
  Sender: ALEXION PHARMACEUTICALS
  Company Number: CO-AstraZeneca-CH-00788702A

PATIENT
  Age: 78 Year
  Weight: 70 kg

DRUGS (1)
  1. SODIUM ZIRCONIUM CYCLOSILICATE [Suspect]
     Active Substance: SODIUM ZIRCONIUM CYCLOSILICATE
     Indication: Hyperkalaemia
     Dosage: 10 GRAM, QOD

REACTIONS (3)
  - Hyperkalaemia [Recovering/Resolving]
  - Pneumonia [Recovering/Resolving]
  - Illness [Recovering/Resolving]
